FAERS Safety Report 9800368 (Version 3)
Quarter: 2014Q1

REPORT INFORMATION
  Report Type: Spontaneous
  Country: US (occurrence: US)
  Receive Date: 20140106
  Receipt Date: 20140107
  Transmission Date: 20141002
  Serious: Yes (Other)
  Sender: FDA-Public Use
  Company Number: US-DRREDDYS-USA/USA/13/0036590

PATIENT
  Age: 30 Year
  Sex: Female

DRUGS (3)
  1. ZENATANE [Suspect]
     Indication: ACNE
     Route: 065
     Dates: start: 20131119, end: 2013
  2. ZENATANE [Suspect]
     Route: 065
     Dates: start: 20131203, end: 201312
  3. ALPRAZOLAM [Concomitant]
     Indication: PRODUCT USED FOR UNKNOWN INDICATION
     Route: 065

REACTIONS (6)
  - Abnormal dreams [Unknown]
  - Fatigue [Unknown]
  - Myalgia [Not Recovered/Not Resolved]
  - Pain in extremity [Unknown]
  - Decreased appetite [Unknown]
  - Asthenia [Unknown]
